FAERS Safety Report 8681554 (Version 2)
Quarter: 2012Q4

REPORT INFORMATION
  Report Type: 
  Country: MX (occurrence: MX)
  Receive Date: 20120725
  Receipt Date: 20121019
  Transmission Date: 20130627
  Serious: Yes (Hospitalization, Other)
  Sender: FDA-Public Use
  Company Number: PHHY2012MX062831

PATIENT
  Age: 84 Year
  Sex: Female

DRUGS (3)
  1. ACLASTA [Suspect]
     Indication: OSTEOPOROSIS
     Dosage: 5 mg, yearly
     Route: 042
     Dates: start: 20111015
  2. LOSEC [Concomitant]
     Indication: ABDOMINAL DISCOMFORT
     Dosage: 20 mg, QD
     Dates: start: 2000
  3. ANTIBIOTICS [Concomitant]
     Indication: URINARY TRACT INFECTION
     Dosage: UNK UKN, UNK

REACTIONS (4)
  - Haemorrhage urinary tract [Recovered/Resolved]
  - Haemoglobin decreased [Recovered/Resolved]
  - Urinary bladder haemorrhage [Unknown]
  - Renal cyst [Unknown]
